FAERS Safety Report 13211147 (Version 1)
Quarter: 2017Q1

REPORT INFORMATION
  Report Type: Spontaneous
  Country: US (occurrence: US)
  Receive Date: 20170210
  Receipt Date: 20170210
  Transmission Date: 20170428
  Serious: No
  Sender: FDA-Public Use
  Company Number: None

PATIENT
  Age: 53 Year
  Sex: Female
  Weight: 50.4 kg

DRUGS (4)
  1. IMITREX [Concomitant]
     Active Substance: SUMATRIPTAN SUCCINATE
  2. ESTRACE [Suspect]
     Active Substance: ESTRADIOL
     Indication: ATROPHIC VULVOVAGINITIS
     Dosage: QUANTITY:2 GM;OTHER FREQUENCY:2-3 TIMES PER WEEK;?
     Route: 067
     Dates: start: 20160709, end: 20170209
  3. ALLEGRA [Concomitant]
     Active Substance: FEXOFENADINE HYDROCHLORIDE
  4. ESTRACE [Suspect]
     Active Substance: ESTRADIOL
     Indication: POSTMENOPAUSE
     Dosage: QUANTITY:2 GM;OTHER FREQUENCY:2-3 TIMES PER WEEK;?
     Route: 067
     Dates: start: 20160709, end: 20170209

REACTIONS (4)
  - Pruritus [None]
  - Skin burning sensation [None]
  - Dysuria [None]
  - Burning sensation [None]

NARRATIVE: CASE EVENT DATE: 20170209
